FAERS Safety Report 17204263 (Version 1)
Quarter: 2019Q4

REPORT INFORMATION
  Report Type: Report from Study
  Country: FR (occurrence: FR)
  Receive Date: 20191226
  Receipt Date: 20191226
  Transmission Date: 20200122
  Serious: Yes (Other)
  Sender: FDA-Public Use
  Company Number: FR-JNJFOC-20191232678

PATIENT
  Age: 64 Year
  Sex: Female
  Weight: 75 kg

DRUGS (2)
  1. EUTHYRAL [Concomitant]
     Active Substance: LEVOTHYROXINE SODIUM\LIOTHYRONINE SODIUM
     Indication: AUTOIMMUNE THYROIDITIS
     Dosage: UNKNOWN
     Route: 048
  2. REMICADE [Suspect]
     Active Substance: INFLIXIMAB
     Indication: RHEUMATOID ARTHRITIS
     Dosage: 250 MG, CYCLIC, EVERY 10 WEEKS; CYCLICAL
     Route: 042
     Dates: start: 20170801

REACTIONS (3)
  - Off label use [Unknown]
  - Basal cell carcinoma [Recovered/Resolved]
  - Product use issue [Unknown]

NARRATIVE: CASE EVENT DATE: 20170801
